FAERS Safety Report 5587506-7 (Version None)
Quarter: 2007Q4

REPORT INFORMATION
  Report Type: 
  Country: None (occurrence: None)
  Receive Date: 20071207
  Receipt Date: 20070913
  Transmission Date: 20080405
  Serious: Yes (Other)
  Sender: FDA-Public Use
  Company Number: 2007072577

PATIENT
  Age: 45 Year
  Sex: Male
  Weight: 89.09 kg

DRUGS (1)
  1. VIAGRA [Suspect]
     Indication: ERECTILE DYSFUNCTION
     Dosage: QD
     Dates: start: 20070828

REACTIONS (3)
  - EMOTIONAL DISTRESS [None]
  - ERECTION INCREASED [None]
  - PAIN [None]
